FAERS Safety Report 13263624 (Version 1)
Quarter: 2017Q1

REPORT INFORMATION
  Report Type: Spontaneous
  Country: US (occurrence: US)
  Receive Date: 20170221
  Receipt Date: 20170221
  Transmission Date: 20170428
  Serious: No
  Sender: FDA-Public Use
  Company Number: None

PATIENT
  Age: 26 Year
  Sex: Female
  Weight: 66.6 kg

DRUGS (3)
  1. SKYLA [Suspect]
     Active Substance: LEVONORGESTREL
     Indication: CONTRACEPTION
     Dosage: QUANTITY:1 DEVICE;OTHER FREQUENCY:3 YEARS;?
     Route: 067
     Dates: start: 20170104
  2. IRON [Concomitant]
     Active Substance: IRON
  3. JUICE PLUS [Concomitant]
     Active Substance: DIETARY SUPPLEMENT

REACTIONS (2)
  - Rash pruritic [None]
  - Skin exfoliation [None]

NARRATIVE: CASE EVENT DATE: 20170122
